FAERS Safety Report 21652423 (Version 12)
Quarter: 2023Q1

REPORT INFORMATION
  Report Type: Spontaneous
  Country: US (occurrence: US)
  Receive Date: 20221128
  Receipt Date: 20230321
  Transmission Date: 20230417
  Serious: Yes (Hospitalization, Other)
  Sender: FDA-Public Use
  Company Number: US-PFIZER INC-PV202200073980

PATIENT
  Age: 82 Year
  Sex: Male
  Weight: 61.69 kg

DRUGS (10)
  1. LIPITOR [Suspect]
     Active Substance: ATORVASTATIN CALCIUM
     Indication: Hypertension
     Dosage: 20 MG
     Route: 065
  2. LIPITOR [Suspect]
     Active Substance: ATORVASTATIN CALCIUM
     Indication: Blood cholesterol abnormal
     Dosage: 10 MG
  3. ELIQUIS [Suspect]
     Active Substance: APIXABAN
     Indication: Atrial fibrillation
     Dosage: 5 MG, 2X/DAY
     Route: 065
  4. TIKOSYN [Suspect]
     Active Substance: DOFETILIDE
     Indication: Atrial fibrillation
     Dosage: 250 UG, 2X/DAY
     Dates: start: 2022
  5. METOPROLOL TARTRATE [Suspect]
     Active Substance: METOPROLOL TARTRATE
     Indication: Heart rate decreased
     Dosage: 50 MG
  6. METOPROLOL TARTRATE [Suspect]
     Active Substance: METOPROLOL TARTRATE
     Indication: Bradycardia
     Dosage: 25 MG, 2X/DAY
     Route: 065
  7. XTANDI [Suspect]
     Active Substance: ENZALUTAMIDE
     Indication: Bone cancer
     Dosage: 160 MG, 1X/DAY
     Dates: start: 2022
  8. TYLENOL [Suspect]
     Active Substance: ACETAMINOPHEN
     Indication: Pain
     Dosage: 650 MG, 2X/DAY
     Route: 065
  9. TYLENOL [Suspect]
     Active Substance: ACETAMINOPHEN
     Indication: Spinal stenosis
  10. XANAX [Suspect]
     Active Substance: ALPRAZOLAM
     Dosage: UNK (ONCE IN A WHILE)

REACTIONS (9)
  - Pain in extremity [Not Recovered/Not Resolved]
  - Back pain [Not Recovered/Not Resolved]
  - Atrial fibrillation [Unknown]
  - Prostate cancer stage IV [Unknown]
  - Prostate cancer metastatic [Unknown]
  - Neuropathy peripheral [Unknown]
  - Fatigue [Unknown]
  - Nervous system disorder [Unknown]
  - Arthritis [Unknown]
